APPROVED DRUG PRODUCT: AMOXICILLIN
Active Ingredient: AMOXICILLIN
Strength: 875MG
Dosage Form/Route: TABLET;ORAL
Application: A065344 | Product #001
Applicant: CHARTWELL RX SCIENCES LLC
Approved: Jan 15, 2009 | RLD: No | RS: No | Type: DISCN